FAERS Safety Report 10027265 (Version 1)
Quarter: 2014Q1

REPORT INFORMATION
  Report Type: Spontaneous
  Country: GB (occurrence: GB)
  Receive Date: 20140321
  Receipt Date: 20140321
  Transmission Date: 20141002
  Serious: Yes (Life-Threatening, Hospitalization)
  Sender: FDA-Public Use
  Company Number: GB-SA-2014SA030948

PATIENT
  Age: 33 Year
  Sex: Male
  Weight: 90.8 kg

DRUGS (10)
  1. LEFLUNOMIDE [Suspect]
     Indication: PSORIATIC ARTHROPATHY
     Route: 048
  2. OXYCONTIN [Concomitant]
  3. OXYNORM [Concomitant]
  4. ARCOXIA [Concomitant]
  5. LYRICA [Concomitant]
  6. ENBREL [Concomitant]
  7. FENTANYL [Concomitant]
  8. ZOLPIDEM [Concomitant]
  9. PIZOTIFEN [Concomitant]
  10. CITALOPRAM [Concomitant]

REACTIONS (6)
  - Swollen tongue [Recovered/Resolved with Sequelae]
  - Pharyngeal oedema [Recovered/Resolved with Sequelae]
  - Rash [Recovered/Resolved with Sequelae]
  - Vomiting [Recovered/Resolved with Sequelae]
  - Diarrhoea [Recovered/Resolved with Sequelae]
  - Dyspnoea [Not Recovered/Not Resolved]
